FAERS Safety Report 6028121-0 (Version None)
Quarter: 2009Q1

REPORT INFORMATION
  Report Type: 
  Country: None (occurrence: None)
  Receive Date: 20090106
  Receipt Date: 20081230
  Transmission Date: 20090719
  Serious: Yes (Hospitalization)
  Sender: FDA-Public Use
  Company Number: US-RANBAXY-2008RR-19891

PATIENT
  Age: 32 Year
  Sex: Male
  Weight: 80.2 kg

DRUGS (2)
  1. ACETAMINOPHEN [Suspect]
     Indication: INTENTIONAL OVERDOSE
     Dosage: 48 G, UNK
     Route: 048
  2. DIPHENHYDRAMINE HCL [Concomitant]
     Dosage: 2.4 G, UNK
     Route: 048

REACTIONS (3)
  - LIVER INJURY [None]
  - OVERDOSE [None]
  - RENAL IMPAIRMENT [None]
